FAERS Safety Report 20571593 (Version 1)
Quarter: 2022Q1

REPORT INFORMATION
  Report Type: Spontaneous
  Country: US (occurrence: US)
  Receive Date: 20220309
  Receipt Date: 20220309
  Transmission Date: 20220423
  Serious: No
  Sender: FDA-Public Use
  Company Number: US-JNJFOC-20220310049

PATIENT
  Age: 19 Year
  Sex: Male
  Weight: 65.830 kg

DRUGS (2)
  1. STELARA [Suspect]
     Active Substance: USTEKINUMAB
     Indication: Colitis ulcerative
     Route: 042
  2. LIALDA [Concomitant]
     Active Substance: MESALAMINE
     Indication: Colitis ulcerative

REACTIONS (4)
  - Rash [Unknown]
  - Swelling [Unknown]
  - Pruritus [Unknown]
  - Papilloma viral infection [Recovered/Resolved]

NARRATIVE: CASE EVENT DATE: 20220201
